FAERS Safety Report 12254925 (Version 1)
Quarter: 2016Q2

REPORT INFORMATION
  Report Type: Spontaneous
  Country: CZ (occurrence: CZ)
  Receive Date: 20160411
  Receipt Date: 20160411
  Transmission Date: 20160815
  Serious: Yes (Other)
  Sender: FDA-Public Use
  Company Number: CZ-ELI_LILLY_AND_COMPANY-CZ201604002994

PATIENT
  Age: 17 Year
  Sex: Male

DRUGS (3)
  1. CHLORPROTHIXEN                     /00012102/ [Concomitant]
     Active Substance: CHLORPROTHIXENE HYDROCHLORIDE
     Dosage: 250 MG, UNKNOWN
     Route: 065
  2. LEVOPROMAZIN [Concomitant]
     Active Substance: LEVOMEPROMAZINE
     Dosage: 125 MG, UNKNOWN
     Route: 065
  3. OLANZAPINE. [Suspect]
     Active Substance: OLANZAPINE
     Indication: SEVERE MENTAL RETARDATION
     Dosage: 10 MG, UNKNOWN
     Route: 065

REACTIONS (3)
  - Weight increased [Unknown]
  - Deep vein thrombosis [Unknown]
  - Off label use [Unknown]
